FAERS Safety Report 20878067 (Version 8)
Quarter: 2022Q4

REPORT INFORMATION
  Report Type: Report from Study
  Country: US (occurrence: US)
  Receive Date: 20220526
  Receipt Date: 20221020
  Transmission Date: 20230113
  Serious: Yes (Other)
  Sender: FDA-Public Use
  Company Number: US-NOVARTISTESTPH-NVSC2022US121560

PATIENT
  Sex: Male

DRUGS (2)
  1. ENTRESTO [Suspect]
     Active Substance: SACUBITRIL\VALSARTAN
     Indication: Product used for unknown indication
     Dosage: 50 MG, BID (24/26 MG)
     Route: 048
     Dates: start: 20220504
  2. ENTRESTO [Suspect]
     Active Substance: SACUBITRIL\VALSARTAN
     Dosage: 50 MG, BID (24/26 MG)
     Route: 048
     Dates: start: 20220627

REACTIONS (9)
  - Pericardial effusion [Recovered/Resolved]
  - Atrial fibrillation [Unknown]
  - Panic attack [Unknown]
  - Procedural pain [Unknown]
  - Feeling abnormal [Unknown]
  - COVID-19 [Unknown]
  - Pyrexia [Unknown]
  - Sleep apnoea syndrome [Recovering/Resolving]
  - Cough [Unknown]
